FAERS Safety Report 5089185-4 (Version None)
Quarter: 2006Q3

REPORT INFORMATION
  Report Type: 
  Country: None (occurrence: None)
  Receive Date: 20060822
  Receipt Date: 20060811
  Transmission Date: 20061208
  Serious: Yes (Other)
  Sender: FDA-Public Use
  Company Number: IE200608002330

PATIENT
  Age: 36 Year
  Sex: Female

DRUGS (4)
  1. ZYPREXA [Suspect]
     Indication: SCHIZOPHRENIA
     Dosage: 20 MG, EACH EVENING, ORAL
     Route: 048
     Dates: end: 20060717
  2. HALOPERIDOL [Concomitant]
  3. METFORMIN HCL [Concomitant]
  4. LISINOPRIL [Concomitant]

REACTIONS (1)
  - CARDIOMYOPATHY [None]
